FAERS Safety Report 11221946 (Version 3)
Quarter: 2015Q4

REPORT INFORMATION
  Report Type: Spontaneous
  Country: SE (occurrence: SE)
  Receive Date: 20150626
  Receipt Date: 20151005
  Transmission Date: 20160304
  Serious: Yes (Other)
  Sender: FDA-Public Use
  Company Number: SE-PFIZER INC-2015170704

PATIENT
  Age: 72 Year
  Sex: Female

DRUGS (6)
  1. ATENOLOL. [Concomitant]
     Active Substance: ATENOLOL
     Indication: BLOOD PRESSURE MEASUREMENT
     Dosage: UNK
     Dates: start: 2005
  2. ALLOPURINOL. [Concomitant]
     Active Substance: ALLOPURINOL
     Indication: GOUT
     Dosage: UNK
     Dates: start: 2010
  3. JANUVIA [Concomitant]
     Active Substance: SITAGLIPTIN PHOSPHATE
     Indication: DIABETES MELLITUS
     Dosage: 100 MG, UNK
     Dates: start: 201401
  4. SIMVASTATIN. [Concomitant]
     Active Substance: SIMVASTATIN
     Indication: BLOOD CHOLESTEROL
     Dosage: UNK
     Dates: start: 2005
  5. ATARAX [Concomitant]
     Active Substance: HYDROXYZINE\HYDROXYZINE HYDROCHLORIDE
     Indication: PRURITUS
     Dosage: UNK
     Dates: start: 2005
  6. MINDIAB [Suspect]
     Active Substance: GLIPIZIDE
     Indication: TYPE 2 DIABETES MELLITUS
     Dosage: 5 MG, 1X/DAY
     Route: 048
     Dates: start: 201308, end: 201505

REACTIONS (3)
  - Diarrhoea [Recovered/Resolved]
  - Gastrointestinal inflammation [Unknown]
  - Blood glucose increased [Unknown]

NARRATIVE: CASE EVENT DATE: 20140605
